FAERS Safety Report 9741117 (Version 1)
Quarter: 2013Q4

REPORT INFORMATION
  Report Type: Spontaneous
  Country: DK (occurrence: DK)
  Receive Date: 20131209
  Receipt Date: 20131209
  Transmission Date: 20140711
  Serious: Yes (Other)
  Sender: FDA-Public Use
  Company Number: DK-TEVA-447570ISR

PATIENT
  Age: 49 Year
  Sex: Female
  Weight: 73 kg

DRUGS (2)
  1. MYFENAX [Suspect]
     Indication: SYSTEMIC SCLEROSIS
     Dosage: 2000 MILLIGRAM DAILY; STRENGTH: 500 MG
     Route: 048
     Dates: start: 20130409, end: 20130516
  2. LANSOPRAZOL [Concomitant]
     Indication: ABDOMINAL DISCOMFORT
     Dates: start: 20101207

REACTIONS (4)
  - Pseudoangina [Recovered/Resolved]
  - Hyperhidrosis [Recovered/Resolved]
  - Polyuria [Recovered/Resolved]
  - Product substitution issue [Unknown]
